APPROVED DRUG PRODUCT: AGGRASTAT
Active Ingredient: TIROFIBAN HYDROCHLORIDE
Strength: EQ 12.5MG BASE/250ML (EQ 0.05MG BASE/ML)
Dosage Form/Route: SOLUTION;INTRAVENOUS
Application: N020913 | Product #003 | TE Code: AP
Applicant: MEDICURE INTERNATIONAL INC
Approved: Apr 20, 2000 | RLD: Yes | RS: Yes | Type: RX